FAERS Safety Report 20183330 (Version 1)
Quarter: 2021Q4

REPORT INFORMATION
  Report Type: Spontaneous
  Country: US (occurrence: None)
  Receive Date: 20211214
  Receipt Date: 20211214
  Transmission Date: 20220303
  Serious: Yes (Other)
  Sender: FDA-Public Use
  Company Number: None

PATIENT
  Age: 29 Year
  Sex: Female
  Weight: 55.35 kg

DRUGS (1)
  1. TRIAMCINOLONE ACETONIDE [Suspect]
     Active Substance: TRIAMCINOLONE ACETONIDE
     Indication: Dermatitis atopic
     Dosage: OTHER STRENGTH : NOT SURE;?FREQUENCY : DAILY;?
     Route: 061
     Dates: start: 20160713, end: 20210214

REACTIONS (7)
  - Topical steroid withdrawal reaction [None]
  - Rash [None]
  - Skin weeping [None]
  - Erythema [None]
  - Insomnia [None]
  - Quality of life decreased [None]
  - Drug ineffective [None]

NARRATIVE: CASE EVENT DATE: 20210214
